FAERS Safety Report 4398265-8 (Version None)
Quarter: 2004Q3

REPORT INFORMATION
  Report Type: 
  Country: None (occurrence: None)
  Receive Date: 20040715
  Receipt Date: 20040706
  Transmission Date: 20050211
  Serious: Yes (Other)
  Sender: FDA-Public Use
  Company Number: PHNU2004DE02398

PATIENT
  Age: 86 Year
  Sex: Male

DRUGS (11)
  1. DIOVAN [Suspect]
     Dosage: 80 MG, QD
     Route: 048
     Dates: start: 19990101, end: 20020101
  2. CAPTOPRIL AND HYDROCHLOROTHIAZIDE [Suspect]
     Dosage: 1 DF, QD
     Dates: start: 19990101, end: 20020101
  3. ARELIX ACE [Concomitant]
     Dosage: 1 DF, QD
     Dates: start: 19990101, end: 20020101
  4. LASIX                                   /SCH/ [Concomitant]
     Dosage: 1 DF, QW2
     Dates: start: 19990101, end: 20020101
  5. CORVATON ^AVENTIS PHARMA^ [Concomitant]
     Dosage: 1 DF, QD
     Dates: start: 19990101
  6. ASPIRIN [Concomitant]
     Dosage: 1 DF, QD
     Dates: start: 19990101
  7. LIPOBAY [Concomitant]
     Dosage: .5 DF, QD
     Dates: start: 19990101, end: 20020101
  8. UNAT [Suspect]
     Dosage: 1 DF, QD
     Dates: start: 20020101
  9. ZOCOR [Concomitant]
     Dosage: 1 DF, QD
     Dates: start: 20020101
  10. SIMVASTATIN [Concomitant]
     Dosage: 1 DF, QD
  11. KINZALMONO [Suspect]
     Dates: start: 20020101

REACTIONS (19)
  - AORTIC VALVE STENOSIS [None]
  - ASTHENIA [None]
  - CARDIOVASCULAR DISORDER [None]
  - CONDITION AGGRAVATED [None]
  - DIZZINESS [None]
  - DYSPNOEA [None]
  - FATIGUE [None]
  - GAIT DISTURBANCE [None]
  - HEADACHE [None]
  - HOT FLUSH [None]
  - HYPERHIDROSIS [None]
  - HYPOAESTHESIA [None]
  - MUSCLE CRAMP [None]
  - MUSCULOSKELETAL STIFFNESS [None]
  - NASOPHARYNGITIS [None]
  - NAUSEA [None]
  - PALPITATIONS [None]
  - SINUS DISORDER [None]
  - SINUS PAIN [None]
